FAERS Safety Report 16583140 (Version 3)
Quarter: 2019Q4

REPORT INFORMATION
  Report Type: Spontaneous
  Country: US (occurrence: US)
  Receive Date: 20190717
  Receipt Date: 20191105
  Transmission Date: 20200122
  Serious: No
  Sender: FDA-Public Use
  Company Number: US-PFIZER INC-2019070600

PATIENT
  Age: 68 Year
  Sex: Male
  Weight: 102.6 kg

DRUGS (3)
  1. LYRICA [Suspect]
     Active Substance: PREGABALIN
     Indication: ACCIDENTAL POISONING
     Dosage: 20 MG, 1 CAPSULE THREE TIMES A DAY
     Route: 048
  2. LYRICA [Suspect]
     Active Substance: PREGABALIN
     Indication: NEUROPATHY PERIPHERAL
     Dosage: 200 MG, 3X/DAY
     Dates: start: 2007
  3. OXYCODONE [Concomitant]
     Active Substance: OXYCODONE
     Dosage: 15 MG, 3X/DAY
     Dates: start: 2007

REACTIONS (1)
  - Anxiety [Unknown]
